FAERS Safety Report 8438002-0 (Version None)
Quarter: 2012Q2

REPORT INFORMATION
  Report Type: 
  Country: None (occurrence: None)
  Receive Date: 20120614
  Receipt Date: 20120601
  Transmission Date: 20120825
  Serious: No
  Sender: FDA-Public Use
  Company Number: US-AMGEN-USASP2012028498

PATIENT
  Age: 39 Year
  Sex: Female

DRUGS (1)
  1. XGEVA [Suspect]
     Indication: PRODUCT USED FOR UNKNOWN INDICATION

REACTIONS (6)
  - HYPOAESTHESIA ORAL [None]
  - DIZZINESS POSTURAL [None]
  - HEADACHE [None]
  - PARAESTHESIA ORAL [None]
  - SKIN DISCOLOURATION [None]
  - BLOOD PRESSURE DECREASED [None]
